FAERS Safety Report 7592437-7 (Version None)
Quarter: 2011Q3

REPORT INFORMATION
  Report Type: 
  Country: None (occurrence: None)
  Receive Date: 20110705
  Receipt Date: 20110705
  Transmission Date: 20111222
  Serious: Yes (Other)
  Sender: FDA-Public Use
  Company Number: None

PATIENT
  Sex: Female
  Weight: 56.246 kg

DRUGS (1)
  1. ZOSYN [Suspect]
     Indication: OSTEOMYELITIS
     Dosage: 3.375GM Q6H IV
     Route: 042
     Dates: start: 20110622, end: 20110627

REACTIONS (3)
  - RASH ERYTHEMATOUS [None]
  - PRURITUS [None]
  - FEELING ABNORMAL [None]
